FAERS Safety Report 22231810 (Version 1)
Quarter: 2023Q2

REPORT INFORMATION
  Report Type: Spontaneous
  Country: US (occurrence: None)
  Receive Date: 20230420
  Receipt Date: 20230420
  Transmission Date: 20230721
  Serious: No
  Sender: FDA-Public Use
  Company Number: US-ROCHE-3173095

PATIENT
  Age: 74 Year
  Sex: Male

DRUGS (1)
  1. ESBRIET [Suspect]
     Active Substance: PIRFENIDONE
     Indication: Idiopathic pulmonary fibrosis
     Dosage: TAKE 1 TABLET BY MOUTH 3 TIMES DAILY FOR 7 DAYS, THEN 2 TABLETS 3 TIMES DAILY FOR 7 DAYS, THEN 3 TAB
     Route: 048
     Dates: start: 20220408

REACTIONS (3)
  - Drug intolerance [Unknown]
  - Rash [Recovered/Resolved]
  - Pain in extremity [Unknown]
